FAERS Safety Report 4398389-5 (Version None)
Quarter: 2004Q3

REPORT INFORMATION
  Report Type: 
  Country: None (occurrence: None)
  Receive Date: 20040715
  Receipt Date: 20040707
  Transmission Date: 20050211
  Serious: Yes (Disabling)
  Sender: FDA-Public Use
  Company Number: US-MERCK-0407USA00665

PATIENT
  Sex: Female

DRUGS (6)
  1. ATENOLOL [Concomitant]
     Route: 065
  2. ESTROGENS (UNSPECIFIED) [Concomitant]
     Route: 065
  3. HYDROCHLOROTHIAZIDE [Concomitant]
     Route: 065
  4. LEVOXYL [Concomitant]
     Route: 065
  5. COZAAR [Suspect]
     Indication: CARDIOMEGALY
     Route: 048
     Dates: end: 20040101
  6. COZAAR [Suspect]
     Route: 048
     Dates: start: 20040101

REACTIONS (8)
  - ADVERSE EVENT [None]
  - ASTHMA [None]
  - BACK PAIN [None]
  - BLADDER SPASM [None]
  - DYSPNOEA [None]
  - FACE OEDEMA [None]
  - FATIGUE [None]
  - PRODUCTIVE COUGH [None]
